FAERS Safety Report 10727084 (Version 4)
Quarter: 2015Q3

REPORT INFORMATION
  Report Type: Report from Study
  Country: MX (occurrence: MX)
  Receive Date: 20150121
  Receipt Date: 20150911
  Transmission Date: 20151125
  Serious: Yes (Death, Hospitalization, Other)
  Sender: FDA-Public Use
  Company Number: PHHY2014MX165637

PATIENT
  Age: 72 Year
  Sex: Male

DRUGS (15)
  1. TEMODAL [Concomitant]
     Active Substance: TEMOZOLOMIDE
     Indication: BRAIN NEOPLASM
     Dosage: 2 DF, QD
     Route: 065
     Dates: start: 2014, end: 201412
  2. IRESSA [Concomitant]
     Active Substance: GEFITINIB
     Indication: BRAIN NEOPLASM
     Dosage: 1 DF, Q72H
     Route: 065
     Dates: start: 201412
  3. DIOVAN [Suspect]
     Active Substance: VALSARTAN
     Dosage: 160 MG, UNK
     Route: 048
     Dates: start: 2014, end: 2014
  4. DIOVAN [Suspect]
     Active Substance: VALSARTAN
     Dosage: 80 MG, QD
     Route: 048
     Dates: start: 2014
  5. DIOVAN [Suspect]
     Active Substance: VALSARTAN
     Indication: HYPERTENSION
     Dosage: 160 MG, UNK
     Route: 048
     Dates: start: 201107, end: 2014
  6. ADALAT CC [Concomitant]
     Active Substance: NIFEDIPINE
     Indication: HYPERTENSION
     Dosage: 1 DF, QHS
     Route: 065
  7. DIOVAN [Suspect]
     Active Substance: VALSARTAN
     Dosage: 320 MG, UNK
     Route: 048
     Dates: start: 201404
  8. DIOVAN [Suspect]
     Active Substance: VALSARTAN
     Dosage: 1 DF (UNKNOWN DOSE), QD (START: 1 YEAR AGO)
     Route: 065
  9. ALIN [Concomitant]
     Indication: INFLAMMATION
     Dosage: 1 DF, BID (IN THE MORNING AND IN THE AFTERNOON)
     Route: 065
  10. ULSEN [Concomitant]
     Active Substance: OMEPRAZOLE
     Indication: GASTRITIS PROPHYLAXIS
     Dosage: 2 DF, QD
     Route: 065
  11. GILOTRIF [Concomitant]
     Active Substance: AFATINIB
     Indication: BRAIN NEOPLASM
     Dosage: 1 DF, QD
     Route: 065
     Dates: start: 201408
  12. CORTISON [Concomitant]
     Active Substance: CORTISONE ACETATE
     Indication: NONINFECTIVE ENCEPHALITIS
     Dosage: 2 DF(0.5 MG), BID
     Route: 065
  13. DOLAC [Concomitant]
     Indication: HEADACHE
     Dosage: 0.5 DF, PRN (ONLY WHEN NECESSARY)
     Route: 065
  14. ALIN [Concomitant]
     Indication: NEOPLASM MALIGNANT
     Dosage: 1 OT, QD (FROM 4 YEARS AGO TO 2 DAYS BEFORE DEATH)
     Route: 048
  15. TARCEVA [Concomitant]
     Active Substance: ERLOTINIB HYDROCHLORIDE
     Indication: LUNG NEOPLASM MALIGNANT
     Dosage: 2 DF, QD
     Route: 065

REACTIONS (8)
  - Respiratory arrest [Fatal]
  - Blood pressure decreased [Unknown]
  - Blood pressure increased [Recovered/Resolved]
  - Gait disturbance [Not Recovered/Not Resolved]
  - Neoplasm malignant [Not Recovered/Not Resolved]
  - Blood pressure fluctuation [Not Recovered/Not Resolved]
  - Depressed mood [Unknown]
  - Ulcer [Recovered/Resolved]

NARRATIVE: CASE EVENT DATE: 201404
